FAERS Safety Report 13953289 (Version 3)
Quarter: 2017Q4

REPORT INFORMATION
  Report Type: Report from Study
  Country: JP (occurrence: JP)
  Receive Date: 20170911
  Receipt Date: 20171206
  Transmission Date: 20180320
  Serious: Yes (Hospitalization)
  Sender: FDA-Public Use
  Company Number: JP-009507513-1709JPN000349J

PATIENT
  Age: 47 Year
  Sex: Male

DRUGS (14)
  1. NORVIR [Suspect]
     Active Substance: RITONAVIR
     Dosage: 100 MG, UNK
     Route: 048
     Dates: start: 20161024, end: 20161024
  2. PREZISTA [Suspect]
     Active Substance: DARUNAVIR ETHANOLATE
     Indication: HIV INFECTION
     Dosage: 600 MG, BID
     Route: 048
     Dates: start: 20161004, end: 20161017
  3. ISENTRESS [Suspect]
     Active Substance: RALTEGRAVIR POTASSIUM
     Indication: HIV INFECTION
     Dosage: 400 MG, BID
     Route: 048
     Dates: start: 20081104, end: 20161003
  4. ZIAGEN [Suspect]
     Active Substance: ABACAVIR SULFATE
     Indication: HIV INFECTION
     Dosage: 600 MG, UNK
     Route: 048
     Dates: start: 20020502, end: 20161003
  5. TIVICAY [Suspect]
     Active Substance: DOLUTEGRAVIR SODIUM
     Dosage: 25 MG, UNK
     Route: 048
     Dates: start: 20161019, end: 20161019
  6. NORVIR [Suspect]
     Active Substance: RITONAVIR
     Dosage: 200 MG, UNK
     Route: 048
     Dates: start: 20161025
  7. TIVICAY [Suspect]
     Active Substance: DOLUTEGRAVIR SODIUM
     Indication: HIV INFECTION
     Dosage: 100 MG, UNK
     Route: 048
     Dates: start: 20161004, end: 20161017
  8. PREZISTA [Suspect]
     Active Substance: DARUNAVIR ETHANOLATE
     Dosage: 600 MG, QD
     Route: 048
     Dates: start: 20161024, end: 20161024
  9. VIREAD [Suspect]
     Active Substance: TENOFOVIR DISOPROXIL FUMARATE
     Indication: HIV INFECTION
     Dosage: 300 MG, UNK
     Route: 048
     Dates: start: 20020606, end: 20161003
  10. EPINASTINE HYDROCHLORIDE. [Concomitant]
     Active Substance: EPINASTINE HYDROCHLORIDE
     Indication: DRUG ERUPTION
     Dosage: 20 MG, QD
     Route: 048
     Dates: start: 20161024, end: 20161031
  11. NORVIR [Suspect]
     Active Substance: RITONAVIR
     Indication: HIV INFECTION
     Dosage: 200 MG, UNK
     Route: 048
     Dates: start: 20161004, end: 20161017
  12. PREZISTA [Suspect]
     Active Substance: DARUNAVIR ETHANOLATE
     Dosage: 600 MG, BID
     Route: 048
     Dates: start: 20161025
  13. TIVICAY [Suspect]
     Active Substance: DOLUTEGRAVIR SODIUM
     Dosage: 100 MG, UNK
     Route: 048
     Dates: start: 20161020
  14. HARVONI [Suspect]
     Active Substance: LEDIPASVIR\SOFOSBUVIR
     Indication: CHRONIC HEPATITIS C
     Dosage: 1 DF, QD
     Route: 048
     Dates: start: 20160307, end: 20160530

REACTIONS (5)
  - Drug resistance [Not Recovered/Not Resolved]
  - Insomnia [Not Recovered/Not Resolved]
  - Abdominal discomfort [Not Recovered/Not Resolved]
  - Drug eruption [Recovered/Resolved]
  - Dyslipidaemia [Not Recovered/Not Resolved]

NARRATIVE: CASE EVENT DATE: 20160823
